FAERS Safety Report 5571551-1 (Version None)
Quarter: 2007Q4

REPORT INFORMATION
  Report Type: 
  Country: None (occurrence: None)
  Receive Date: 20071219
  Receipt Date: 20071205
  Transmission Date: 20080405
  Serious: Yes (Death, Other)
  Sender: FDA-Public Use
  Company Number: 2007AL005198

PATIENT
  Age: 5 Year
  Sex: Female
  Weight: 15.4223 kg

DRUGS (4)
  1. ACETAMINOPHEN AND CODEINE PHOSPHATE [Suspect]
     Indication: PHARYNGOLARYNGEAL PAIN
     Dosage: 5 ML;Q4H;PO
     Route: 048
     Dates: start: 20060110, end: 20060112
  2. BACTRIM [Concomitant]
  3. ZINACEF [Concomitant]
  4. LACTULOSE [Concomitant]

REACTIONS (5)
  - ASTHENIA [None]
  - BRAIN DEATH [None]
  - CARDIO-RESPIRATORY ARREST [None]
  - CEREBRAL PALSY [None]
  - DRUG LEVEL INCREASED [None]
